FAERS Safety Report 6074692-8 (Version None)
Quarter: 2009Q1

REPORT INFORMATION
  Report Type: 
  Country: None (occurrence: None)
  Receive Date: 20090209
  Receipt Date: 20090209
  Transmission Date: 20090719
  Serious: No
  Sender: FDA-Public Use
  Company Number: None

PATIENT
  Age: 60 Year
  Sex: Male
  Weight: 105.2345 kg

DRUGS (1)
  1. FENTANYL-100 [Suspect]
     Indication: EYE PAIN
     Dosage: 2 100 MCG PATCHES QOD APPLY TO ARM BEEN USING BRAND AS WELL AS OTHER GENERIC

REACTIONS (3)
  - DEVICE MALFUNCTION [None]
  - ECONOMIC PROBLEM [None]
  - PRODUCT QUALITY ISSUE [None]
